FAERS Safety Report 6123587-X (Version None)
Quarter: 2009Q1

REPORT INFORMATION
  Report Type: 
  Country: None (occurrence: None)
  Receive Date: 20090317
  Receipt Date: 20090317
  Transmission Date: 20090719
  Serious: Yes (Other)
  Sender: FDA-Public Use
  Company Number: None

PATIENT
  Sex: Male
  Weight: 92.9874 kg

DRUGS (1)
  1. FEXOFENIDINE [Suspect]
     Indication: RHINITIS ALLERGIC
     Dosage: 180 MG QD ORAL
     Route: 048
     Dates: start: 20070101

REACTIONS (3)
  - DIARRHOEA [None]
  - PAIN [None]
  - PRODUCT QUALITY ISSUE [None]
